FAERS Safety Report 6686936-X (Version None)
Quarter: 2010Q2

REPORT INFORMATION
  Report Type: 
  Country: None (occurrence: None)
  Receive Date: 20100419
  Receipt Date: 20100406
  Transmission Date: 20101027
  Serious: Yes (Other)
  Sender: FDA-Public Use
  Company Number: PHHY2010TR21272

PATIENT
  Age: 20 Year
  Sex: Male

DRUGS (7)
  1. CYCLOSPORINE [Suspect]
     Indication: RENAL TRANSPLANT
     Dosage: 5 MG/KG/DAY
  2. CYCLOSPORINE [Suspect]
     Indication: PROPHYLAXIS AGAINST TRANSPLANT REJECTION
  3. PREDNISOLONE [Concomitant]
     Indication: RENAL TRANSPLANT
     Dosage: 15 MG/KG/DAY
  4. PREDNISOLONE [Concomitant]
     Indication: PROPHYLAXIS AGAINST TRANSPLANT REJECTION
  5. AZATHIOPRINE [Concomitant]
     Indication: RENAL TRANSPLANT
     Dosage: 2 MG/KG/DAY
  6. AZATHIOPRINE [Concomitant]
     Indication: PROPHYLAXIS AGAINST TRANSPLANT REJECTION
  7. AMOXICILLIN [Concomitant]
     Dosage: 2 G, UNK

REACTIONS (12)
  - CATARACT OPERATION [None]
  - COCHLEA IMPLANT [None]
  - CONCOMITANT DISEASE AGGRAVATED [None]
  - DEAFNESS NEUROSENSORY [None]
  - DENTAL CLEANING [None]
  - DISEASE RECURRENCE [None]
  - GINGIVAL HYPERPLASIA [None]
  - GINGIVECTOMY [None]
  - INTRAOCULAR LENS IMPLANT [None]
  - POOR PERSONAL HYGIENE [None]
  - TOOTH DISORDER [None]
  - VISUAL IMPAIRMENT [None]
